FAERS Safety Report 8477318-9 (Version None)
Quarter: 2012Q2

REPORT INFORMATION
  Report Type: 
  Country: None (occurrence: None)
  Receive Date: 20120620
  Receipt Date: 20120615
  Transmission Date: 20120825
  Serious: Yes (Life-Threatening, Hospitalization, Disabling, Other)
  Sender: FDA-Public Use
  Company Number: 2012SP022940

PATIENT
  Age: 45 Year
  Sex: Female
  Weight: 63.05 kg

DRUGS (5)
  1. NUVARING [Suspect]
     Indication: CONTRACEPTION
     Dosage: VAG, QM; VAG
     Route: 067
     Dates: start: 20030401, end: 20080701
  2. NUVARING [Suspect]
     Indication: CONTRACEPTION
     Dosage: VAG, QM; VAG
     Route: 067
     Dates: start: 20080909, end: 20110501
  3. OVCON-35 [Concomitant]
  4. PROVENTIL [Concomitant]
  5. ADVAIR DISKUS 100/50 [Concomitant]

REACTIONS (2)
  - DEEP VEIN THROMBOSIS [None]
  - PULMONARY EMBOLISM [None]
